FAERS Safety Report 22006460 (Version 1)
Quarter: 2023Q1

REPORT INFORMATION
  Report Type: Spontaneous
  Country: US (occurrence: None)
  Receive Date: 20230216
  Receipt Date: 20230216
  Transmission Date: 20230418
  Serious: No
  Sender: FDA-Public Use
  Company Number: None

PATIENT
  Age: 77 Year
  Sex: Male
  Weight: 84.1 kg

DRUGS (12)
  1. EVEROLIMUS [Suspect]
     Active Substance: EVEROLIMUS
     Indication: Renal cancer
     Dosage: FREQUENCY : DAILY;?
     Route: 048
     Dates: start: 202209
  2. ACETAMINOPHEN [Concomitant]
  3. CENTRUM SILVER [Concomitant]
  4. FINASTERIDE [Concomitant]
  5. GABAPENTIN [Concomitant]
     Active Substance: GABAPENTIN
  6. LENVIMA [Concomitant]
  7. LOSARTAN [Concomitant]
  8. METFORMIN [Concomitant]
  9. OXYCODONE [Concomitant]
  10. PREDNISONE [Concomitant]
  11. SIMVASTATIN [Concomitant]
  12. TAMSULOSIN [Concomitant]

REACTIONS (1)
  - Urinary tract infection [None]
